FAERS Safety Report 9440370 (Version 1)
Quarter: 2013Q3

REPORT INFORMATION
  Report Type: Spontaneous
  Country: SE (occurrence: SE)
  Receive Date: 20130805
  Receipt Date: 20130805
  Transmission Date: 20140515
  Serious: Yes (Other)
  Sender: FDA-Public Use
  Company Number: SE-SANOFI-AVENTIS-2013SA076109

PATIENT
  Age: 56 Year
  Sex: Female

DRUGS (2)
  1. ARAVA [Suspect]
     Indication: POLYARTHRITIS
     Route: 048
     Dates: start: 20120903, end: 20130604
  2. PREDNISOLON [Concomitant]

REACTIONS (1)
  - Polyneuropathy [Not Recovered/Not Resolved]
